FAERS Safety Report 12800017 (Version 1)
Quarter: 2016Q3

REPORT INFORMATION
  Report Type: Report from Study
  Country: US (occurrence: US)
  Receive Date: 20160930
  Receipt Date: 20160930
  Transmission Date: 20161109
  Serious: Yes (Death)
  Sender: FDA-Public Use
  Company Number: US-ASTRAZENECA-2016SE84812

PATIENT
  Age: 1029 Month
  Sex: Male

DRUGS (2)
  1. TAGRISSO [Suspect]
     Active Substance: OSIMERTINIB
     Indication: LUNG NEOPLASM MALIGNANT
     Route: 048
     Dates: start: 20160726, end: 20160915
  2. TAGRISSO [Suspect]
     Active Substance: OSIMERTINIB
     Indication: BRONCHIAL CARCINOMA
     Route: 048
     Dates: start: 20160726, end: 20160915

REACTIONS (3)
  - Death [Fatal]
  - Cough [Not Recovered/Not Resolved]
  - Blood potassium increased [Recovering/Resolving]

NARRATIVE: CASE EVENT DATE: 201609
